FAERS Safety Report 8331055-X (Version None)
Quarter: 2012Q2

REPORT INFORMATION
  Report Type: 
  Country: None (occurrence: None)
  Receive Date: 20120502
  Receipt Date: 20120410
  Transmission Date: 20120825
  Serious: No
  Sender: FDA-Public Use
  Company Number: US-AMGEN-USASP2011055477

PATIENT
  Age: 63 Year
  Sex: Male

DRUGS (2)
  1. ENBREL [Suspect]
     Indication: RHEUMATOID ARTHRITIS
     Dosage: 50 MG, 2 TIMES/WK
     Dates: start: 19981211
  2. ENBREL [Suspect]
     Indication: PSORIASIS

REACTIONS (3)
  - MEMORY IMPAIRMENT [None]
  - PNEUMONIA [None]
  - BRONCHITIS [None]
